FAERS Safety Report 5323570-8 (Version None)
Quarter: 2007Q2

REPORT INFORMATION
  Report Type: 
  Country: None (occurrence: None)
  Receive Date: 20070514
  Receipt Date: 20070507
  Transmission Date: 20071010
  Serious: Yes (Life-Threatening, Hospitalization)
  Sender: FDA-Public Use
  Company Number: US-ASTRAZENECA-2007UW07195

PATIENT
  Age: 20 Year
  Sex: Male

DRUGS (4)
  1. SEROQUEL [Suspect]
     Indication: BIPOLAR I DISORDER
     Route: 048
     Dates: start: 20070326, end: 20070410
  2. SEROQUEL [Suspect]
     Route: 048
  3. ADVIL [Concomitant]
     Indication: LIMB INJURY
     Route: 048
     Dates: start: 20070331, end: 20070331
  4. NAPROSYN [Concomitant]
     Indication: LIMB INJURY
     Route: 048
     Dates: start: 20070402, end: 20070402

REACTIONS (1)
  - BIPOLAR DISORDER [None]
